FAERS Safety Report 4980590-0 (Version None)
Quarter: 2006Q2

REPORT INFORMATION
  Report Type: 
  Country: None (occurrence: None)
  Receive Date: 20060424
  Receipt Date: 20051025
  Transmission Date: 20061013
  Serious: Yes (Other)
  Sender: FDA-Public Use
  Company Number: PR-MERCK-0510USA08997

PATIENT
  Age: 70 Year
  Sex: Male
  Weight: 93 kg

DRUGS (6)
  1. VIOXX [Suspect]
     Indication: BACK PAIN
     Route: 048
     Dates: start: 19990101, end: 20040101
  2. VIOXX [Suspect]
     Indication: ARTHRITIS
     Route: 048
     Dates: start: 19990101, end: 20040101
  3. CELEBREX [Concomitant]
     Route: 065
  4. INSULIN [Concomitant]
     Route: 065
  5. CLINORIL [Concomitant]
     Route: 065
  6. NEURONTIN [Concomitant]
     Route: 065

REACTIONS (8)
  - ANXIETY [None]
  - GASTROINTESTINAL DISORDER [None]
  - GASTROOESOPHAGEAL REFLUX DISEASE [None]
  - HYPERTENSION [None]
  - HYPOAESTHESIA [None]
  - HYPOAESTHESIA ORAL [None]
  - MYOCARDIAL INFARCTION [None]
  - VISION BLURRED [None]
